FAERS Safety Report 14692901 (Version 1)
Quarter: 2018Q1

REPORT INFORMATION
  Report Type: Spontaneous
  Country: JP (occurrence: JP)
  Receive Date: 20180329
  Receipt Date: 20180329
  Transmission Date: 20180509
  Serious: Yes (Death, Other)
  Sender: FDA-Public Use
  Company Number: JP-ACCORD-064891

PATIENT
  Age: 64 Year
  Sex: Female

DRUGS (3)
  1. DOCETAXEL. [Suspect]
     Active Substance: DOCETAXEL
     Indication: UTERINE CANCER
     Dosage: TRI-WEEKLY
  2. CARBOPLATIN. [Suspect]
     Active Substance: CARBOPLATIN
     Indication: METASTASIS
     Dosage: TRI-WEEKLY, AUC 5
  3. PACLITAXEL/PACLITAXEL LIPOSOME [Suspect]
     Active Substance: PACLITAXEL
     Indication: UTERINE CANCER

REACTIONS (19)
  - Pulmonary embolism [Fatal]
  - Recurrent cancer [None]
  - Metastasis [None]
  - Platelet count decreased [None]
  - Right ventricular failure [Fatal]
  - Renal injury [Not Recovered/Not Resolved]
  - Tumour lysis syndrome [Fatal]
  - Metastases to lung [None]
  - Metastases to kidney [None]
  - Neuropathy peripheral [Unknown]
  - White blood cell count increased [None]
  - Blood sodium decreased [None]
  - Acute kidney injury [None]
  - Obstructive shock [Fatal]
  - Blood lactate dehydrogenase increased [None]
  - Uterine cancer [None]
  - Metastases to bone [None]
  - Tumour embolism [Fatal]
  - Myocardial strain [None]
